FAERS Safety Report 25012508 (Version 2)
Quarter: 2025Q1

REPORT INFORMATION
  Report Type: Spontaneous
  Country: JP (occurrence: JP)
  Receive Date: 20250226
  Receipt Date: 20250310
  Transmission Date: 20250408
  Serious: Yes (Other)
  Sender: SANDOZ
  Company Number: JP-002147023-NVSJ2025JP002446

PATIENT
  Sex: Female

DRUGS (2)
  1. ZOLEDRONIC ACID [Suspect]
     Active Substance: ZOLEDRONIC ACID
     Indication: Breast cancer
     Route: 065
  2. ZOLEDRONIC ACID [Suspect]
     Active Substance: ZOLEDRONIC ACID
     Indication: Metastases to bone

REACTIONS (6)
  - Fanconi syndrome acquired [Recovering/Resolving]
  - Hypouricaemia [Recovering/Resolving]
  - Beta 2 microglobulin urine increased [Recovering/Resolving]
  - Renal tubular dysfunction [Recovering/Resolving]
  - Aminoaciduria [Recovering/Resolving]
  - Hypophosphataemia [Recovering/Resolving]
